FAERS Safety Report 11091224 (Version 1)
Quarter: 2015Q2

REPORT INFORMATION
  Report Type: Spontaneous
  Country: US (occurrence: None)
  Receive Date: 20150504
  Receipt Date: 20150504
  Transmission Date: 20150821
  Serious: Yes (Disabling)
  Sender: FDA-Public Use
  Company Number: None

PATIENT
  Age: 64 Year
  Sex: Female
  Weight: 58.97 kg

DRUGS (5)
  1. ESTRADIOL. [Concomitant]
     Active Substance: ESTRADIOL
  2. SIMVASTATIN. [Suspect]
     Active Substance: SIMVASTATIN
     Indication: HYPERLIPIDAEMIA
     Dosage: SIMVASTATIN 40 MG, ONCE DAILY, TAKEN BY MOUTH
     Route: 048
  3. SYNTHROID [Concomitant]
     Active Substance: LEVOTHYROXINE SODIUM
  4. LOSARTAN [Concomitant]
     Active Substance: LOSARTAN
  5. MULTIVITAMIN [Concomitant]
     Active Substance: VITAMINS

REACTIONS (10)
  - Arthralgia [None]
  - Gait disturbance [None]
  - Activities of daily living impaired [None]
  - Economic problem [None]
  - Fatigue [None]
  - Pain in extremity [None]
  - Tendonitis [None]
  - Asthenia [None]
  - Insomnia [None]
  - Quality of life decreased [None]
